FAERS Safety Report 7715164-1 (Version None)
Quarter: 2011Q3

REPORT INFORMATION
  Report Type: 
  Country: None (occurrence: None)
  Receive Date: 20110810
  Receipt Date: 20110516
  Transmission Date: 20111222
  Serious: No
  Sender: FDA-Public Use
  Company Number: 1000020952

PATIENT
  Age: 74 Year
  Sex: Female

DRUGS (7)
  1. SAVELLA [Suspect]
     Indication: FIBROMYALGIA
     Dosage: SEE IMAGE
     Route: 048
     Dates: start: 20110325, end: 20110325
  2. SAVELLA [Suspect]
     Indication: FIBROMYALGIA
     Dosage: SEE IMAGE
     Route: 048
     Dates: start: 20110326, end: 20110327
  3. SAVELLA [Suspect]
     Indication: FIBROMYALGIA
     Dosage: SEE IMAGE
     Route: 048
     Dates: start: 20110328, end: 20110101
  4. SAVELLA [Suspect]
     Indication: FIBROMYALGIA
     Dosage: SEE IMAGE
     Route: 048
     Dates: start: 20110101, end: 20110508
  5. NEFAZODONE (NEFAZODONE) (NEFAZODONE) [Concomitant]
  6. SAVELLA [Suspect]
     Indication: FIBROMYALGIA
     Dosage: 25 MG EVERY AM AND 50 MG EVERY PM, ORAL, 50 MG (50 MG, 1 IN 1 D), ORAL
     Route: 048
     Dates: start: 20110513
  7. SAVELLA [Suspect]
     Indication: FIBROMYALGIA
     Dosage: 25 MG EVERY AM AND 50 MG EVERY PM, ORAL, 50 MG (50 MG, 1 IN 1 D), ORAL
     Route: 048
     Dates: start: 20110509, end: 20110512

REACTIONS (1)
  - SWELLING FACE [None]
